FAERS Safety Report 6341631-1 (Version None)
Quarter: 2009Q3

REPORT INFORMATION
  Report Type: 
  Country: None (occurrence: None)
  Receive Date: 20090902
  Receipt Date: 20090902
  Transmission Date: 20100115
  Serious: Yes (Death)
  Sender: FDA-Public Use
  Company Number: None

PATIENT
  Sex: Female
  Weight: 51 kg

DRUGS (3)
  1. TEMOZOLOMIDE [Suspect]
     Indication: NEOPLASM
     Dosage: 230 MG PO DAILYX5
     Route: 048
     Dates: start: 20090810, end: 20090813
  2. TEMOZOLOMIDE [Suspect]
  3. METHOXYAMINE 15MG/M2 [Suspect]
     Indication: NEOPLASM
     Dosage: 23MG IV X1
     Route: 042
     Dates: start: 20090810

REACTIONS (5)
  - CONDITION AGGRAVATED [None]
  - DISEASE PROGRESSION [None]
  - DYSPNOEA [None]
  - OEDEMA PERIPHERAL [None]
  - PAIN [None]
